FAERS Safety Report 9367046 (Version 2)
Quarter: 2014Q3

REPORT INFORMATION
  Report Type: Spontaneous
  Country: FR (occurrence: FR)
  Receive Date: 20130625
  Receipt Date: 20140708
  Transmission Date: 20150326
  Serious: Yes (Hospitalization)
  Sender: FDA-Public Use
  Company Number: FR-TEVA-415019ISR

PATIENT
  Age: 69 Year
  Sex: Female

DRUGS (10)
  1. AMLOR [Concomitant]
     Active Substance: AMLODIPINE BESYLATE
  2. COUMADINE [Concomitant]
     Active Substance: WARFARIN SODIUM
  3. FUROSEMIDE TEVA 40 MG, COMPRIME SECABLE [Suspect]
     Active Substance: FUROSEMIDE
     Dosage: 3 TABLET DAILY; 2 TABLET IN THE MORNING AND 1 TABLET IN THE EVENING
     Dates: start: 20130612
  4. FUROSEMIDE TEVA 40 MG, COMPRIME SECABLE [Suspect]
     Active Substance: FUROSEMIDE
     Indication: CARDIAC FAILURE
     Dosage: 1 TABLET DAILY; SCORED TABLET
     Route: 048
     Dates: start: 20130509, end: 20130512
  5. AVLOCARDYL [Concomitant]
     Active Substance: PROPRANOLOL HYDROCHLORIDE
  6. METFORMIN [Concomitant]
     Active Substance: METFORMIN HYDROCHLORIDE
  7. MICARDIS [Concomitant]
     Active Substance: TELMISARTAN
  8. FUROSEMIDE TEVA 40 MG, COMPRIME SECABLE [Suspect]
     Active Substance: FUROSEMIDE
     Dosage: 2 TABLET DAILY;
     Dates: start: 20130512
  9. FUROSEMIDE TEVA 40 MG, COMPRIME SECABLE [Suspect]
     Active Substance: FUROSEMIDE
     Dosage: 2 TABLET DAILY;
     Dates: start: 201304, end: 201405
  10. DIGOXIN. [Concomitant]
     Active Substance: DIGOXIN

REACTIONS (6)
  - Fall [Unknown]
  - Fatigue [Unknown]
  - Oedema [Not Recovered/Not Resolved]
  - Nervousness [Unknown]
  - Balance disorder [Unknown]
  - Weight increased [Unknown]

NARRATIVE: CASE EVENT DATE: 201305
